FAERS Safety Report 14800693 (Version 5)
Quarter: 2018Q2

REPORT INFORMATION
  Report Type: Spontaneous
  Country: MX (occurrence: MX)
  Receive Date: 20180424
  Receipt Date: 20180518
  Transmission Date: 20180711
  Serious: Yes (Disabling, Other)
  Sender: FDA-Public Use
  Company Number: MX-ROCHE-2112307

PATIENT
  Age: 43 Year
  Sex: Male
  Weight: 72.3 kg

DRUGS (4)
  1. TEGRETOL [Concomitant]
     Active Substance: CARBAMAZEPINE
     Indication: ANXIETY
     Route: 048
     Dates: start: 1988
  2. RIVOTRIL [Suspect]
     Active Substance: CLONAZEPAM
     Indication: INSOMNIA
     Dosage: CURRENTLY ONGOING. 0.5 - 0.5 - 0.75 (TABLETS)
     Route: 048
     Dates: start: 2014
  3. RIVOTRIL [Suspect]
     Active Substance: CLONAZEPAM
     Indication: ANXIETY
     Dosage: 0.5 - 0.5 - 1 (TABLETS)
     Route: 048
     Dates: start: 1988, end: 2014
  4. ALLEGRA [Concomitant]
     Active Substance: FEXOFENADINE HYDROCHLORIDE
     Route: 065

REACTIONS (10)
  - Hypotension [Not Recovered/Not Resolved]
  - Off label use [Unknown]
  - Drug ineffective [Unknown]
  - Neck pain [Unknown]
  - Tension [Not Recovered/Not Resolved]
  - Intentional product use issue [Unknown]
  - Anxiety [Not Recovered/Not Resolved]
  - Weight decreased [Not Recovered/Not Resolved]
  - Tinnitus [Not Recovered/Not Resolved]
  - Back pain [Unknown]

NARRATIVE: CASE EVENT DATE: 201505
